FAERS Safety Report 9263408 (Version 1)
Quarter: 2013Q2

REPORT INFORMATION
  Report Type: Spontaneous
  Country: US (occurrence: US)
  Receive Date: 20130430
  Receipt Date: 20130430
  Transmission Date: 20140414
  Serious: No
  Sender: FDA-Public Use
  Company Number: US-ABBOTT-12P-163-0972107-00

PATIENT
  Age: 79 Year
  Sex: Female

DRUGS (1)
  1. CREON [Suspect]
     Indication: PANCREATECTOMY
     Dosage: 24,000/CAP. TAKE THREE CAPSULES WITH EACH MEAL AND TWO CAPSULES WITH EACH SNACK DAILY
     Route: 048
     Dates: start: 20100401

REACTIONS (2)
  - Abdominal pain upper [Recovered/Resolved]
  - Diarrhoea [Recovered/Resolved]
